FAERS Safety Report 24557368 (Version 2)
Quarter: 2024Q4

REPORT INFORMATION
  Report Type: Report from Study
  Country: CA (occurrence: CA)
  Receive Date: 20241028
  Receipt Date: 20241206
  Transmission Date: 20250114
  Serious: Yes (Death, Hospitalization, Other)
  Sender: MYLAN
  Company Number: CA-MYLANLABS-2024M1096358

PATIENT
  Age: 84 Year
  Sex: Female

DRUGS (1)
  1. CLOZAPINE [Suspect]
     Active Substance: CLOZAPINE
     Indication: Dementia
     Dosage: 12.5 MILLIGRAM, QD (ONCE DAILY, ON OR ABOUT 19-SEP-2024)
     Route: 065
     Dates: start: 202409, end: 20241022

REACTIONS (4)
  - Cerebrovascular accident [Fatal]
  - Loss of consciousness [Unknown]
  - Delirium [Unknown]
  - Off label use [Unknown]

NARRATIVE: CASE EVENT DATE: 20240901
